FAERS Safety Report 7917922-7 (Version None)
Quarter: 2011Q4

REPORT INFORMATION
  Report Type: 
  Country: None (occurrence: None)
  Receive Date: 20111116
  Receipt Date: 20111111
  Transmission Date: 20120403
  Serious: Yes (Other)
  Sender: FDA-Public Use
  Company Number: PHHY2011NL099823

PATIENT
  Sex: Female

DRUGS (7)
  1. OMEPRAZOLE [Concomitant]
  2. ZOMETA [Suspect]
     Indication: MULTIPLE MYELOMA
     Dosage: 4 MG/ 5 ML ONCE IN 28 DAYS
     Dates: start: 20110622
  3. ZOMETA [Suspect]
     Dosage: 4 MG/ 5 ML ONCE IN 28 DAYS
     Dates: start: 20111013
  4. ZOMETA [Suspect]
     Dosage: 4 MG/ 5 ML ONCE IN 28 DAYS
     Dates: start: 20111111
  5. ACETYLSALICYLIC ACID SRT [Concomitant]
  6. CALCIUM CARBONATE [Concomitant]
  7. METOPROLOL TARTRATE [Concomitant]

REACTIONS (2)
  - COUGH [None]
  - PNEUMONIA [None]
